FAERS Safety Report 5742849-9 (Version None)
Quarter: 2008Q2

REPORT INFORMATION
  Report Type: 
  Country: None (occurrence: None)
  Receive Date: 20080519
  Receipt Date: 20080116
  Transmission Date: 20081010
  Serious: No
  Sender: FDA-Public Use
  Company Number: US-BRISTOL-MYERS SQUIBB COMPANY-14044028

PATIENT
  Age: 74 Year
  Sex: Male

DRUGS (1)
  1. PRONESTYL [Suspect]

REACTIONS (2)
  - NAUSEA [None]
  - PYREXIA [None]
